FAERS Safety Report 7031968-5 (Version None)
Quarter: 2010Q4

REPORT INFORMATION
  Report Type: 
  Country: None (occurrence: None)
  Receive Date: 20101007
  Receipt Date: 20100924
  Transmission Date: 20110411
  Serious: Yes (Other)
  Sender: FDA-Public Use
  Company Number: US-ELI_LILLY_AND_COMPANY-US201009007140

PATIENT
  Age: 20 Year
  Sex: Female

DRUGS (5)
  1. CYMBALTA [Suspect]
     Indication: ANXIETY
     Dosage: 20 MG, 2/D
  2. CYMBALTA [Suspect]
     Dosage: 60 MG, DAILY (1/D)
     Dates: start: 20100923
  3. CYMBALTA [Suspect]
     Dosage: 60 MG, 2/D
     Dates: start: 20100923
  4. TRAZODONE HCL [Concomitant]
     Dates: start: 20100923
  5. XANAX /USA/ [Concomitant]
     Dosage: 0.5 MG, UNK
     Dates: start: 20100923

REACTIONS (11)
  - ANXIETY [None]
  - BLINDNESS [None]
  - DEPRESSION [None]
  - DIZZINESS [None]
  - HEADACHE [None]
  - MEDICATION ERROR [None]
  - NAUSEA [None]
  - OPTIC NEURITIS [None]
  - VISION BLURRED [None]
  - VISUAL FIELD DEFECT [None]
  - VOMITING [None]
